FAERS Safety Report 7728588-3 (Version None)
Quarter: 2011Q3

REPORT INFORMATION
  Report Type: 
  Country: None (occurrence: None)
  Receive Date: 20110831
  Receipt Date: 20110831
  Transmission Date: 20111222
  Serious: Yes (Hospitalization)
  Sender: FDA-Public Use
  Company Number: None

PATIENT
  Sex: Male
  Weight: 82 kg

DRUGS (1)
  1. PEGASYS [Suspect]
     Indication: HEPATITIS C
     Dosage: 180MCG ONCE WEEKLY SUBCUT
     Route: 058
     Dates: start: 20110728, end: 20110826

REACTIONS (4)
  - DIARRHOEA [None]
  - GASTROINTESTINAL STOMA COMPLICATION [None]
  - BLOOD SODIUM DECREASED [None]
  - DEHYDRATION [None]
